FAERS Safety Report 8161270-X (Version None)
Quarter: 2012Q1

REPORT INFORMATION
  Report Type: 
  Country: None (occurrence: None)
  Receive Date: 20120222
  Receipt Date: 20120222
  Transmission Date: 20120608
  Serious: No
  Sender: FDA-Public Use
  Company Number: None

PATIENT
  Sex: Male
  Weight: 82.24 kg

DRUGS (2)
  1. LEUPROLIDE ACETATE [Suspect]
     Dosage: 30 MG
  2. CASODEX [Suspect]
     Dosage: 5150 MG

REACTIONS (2)
  - LIVER FUNCTION TEST ABNORMAL [None]
  - ALANINE AMINOTRANSFERASE INCREASED [None]
